FAERS Safety Report 12423365 (Version 1)
Quarter: 2016Q2

REPORT INFORMATION
  Report Type: Spontaneous
  Country: US (occurrence: None)
  Receive Date: 20160531
  Receipt Date: 20160531
  Transmission Date: 20160815
  Serious: No
  Sender: FDA-Public Use
  Company Number: None

PATIENT
  Age: 1 Month
  Sex: Female
  Weight: 99.34 kg

DRUGS (5)
  1. B-PAP [Concomitant]
  2. MULTI VITAMIN [Concomitant]
     Active Substance: VITAMINS
  3. HERBAL GREEN TEA [Concomitant]
  4. NITROFURANTOIN MONOHYD MAC, 100 MG [Suspect]
     Active Substance: NITROFURANTOIN MONOHYDRATE
     Indication: CYSTITIS
     Route: 048
     Dates: start: 20160411, end: 20160529
  5. ATENOLOL. [Concomitant]
     Active Substance: ATENOLOL

REACTIONS (9)
  - Dysuria [None]
  - Dyspnoea [None]
  - Back pain [None]
  - Urinary retention [None]
  - Nervous system disorder [None]
  - Paraesthesia [None]
  - Hypoaesthesia [None]
  - Cough [None]
  - Abdominal discomfort [None]

NARRATIVE: CASE EVENT DATE: 20160527
